FAERS Safety Report 11046396 (Version 2)
Quarter: 2015Q2

REPORT INFORMATION
  Report Type: Spontaneous
  Country: US (occurrence: US)
  Receive Date: 20150420
  Receipt Date: 20150514
  Transmission Date: 20150821
  Serious: Yes (Death, Other)
  Sender: FDA-Public Use
  Company Number: US-009507513-1504USA011521

PATIENT
  Age: 76 Year
  Sex: Female

DRUGS (1)
  1. NOXAFIL [Suspect]
     Active Substance: POSACONAZOLE
     Dosage: 100 MG, UNK
     Route: 048
     Dates: start: 20140918

REACTIONS (3)
  - Death [Fatal]
  - Leukaemia [Unknown]
  - Hospice care [Unknown]

NARRATIVE: CASE EVENT DATE: 20150407
